FAERS Safety Report 25676691 (Version 1)
Quarter: 2025Q3

REPORT INFORMATION
  Report Type: Spontaneous
  Country: EU (occurrence: EU)
  Receive Date: 20250813
  Receipt Date: 20250813
  Transmission Date: 20251021
  Serious: Yes (Hospitalization)
  Sender: OTSUKA
  Company Number: None

PATIENT
  Age: 23 Year
  Sex: Male
  Weight: 61 kg

DRUGS (3)
  1. ARIPIPRAZOLE [Suspect]
     Active Substance: ARIPIPRAZOLE
     Indication: Psychotic disorder
     Dosage: 10 MG, QD
     Route: 065
     Dates: start: 20250720, end: 20250723
  2. LOXAPINE SUCCINATE [Suspect]
     Active Substance: LOXAPINE SUCCINATE
     Indication: Psychotic disorder
     Dosage: 50 GTT, QD (50 DROP (1/12 ML)
     Route: 065
     Dates: start: 20250720, end: 20250723
  3. VALIUM [Suspect]
     Active Substance: DIAZEPAM
     Indication: Agitation
     Dosage: 30 GTT, QD (30 DROP (1/12 MILLILITRE))
     Route: 065
     Dates: start: 20250720

REACTIONS (6)
  - Macroglossia [Recovered/Resolved]
  - Dysarthria [Recovered/Resolved]
  - Dystonia [Recovered/Resolved]
  - Salivary hypersecretion [Recovered/Resolved]
  - Tachycardia [Recovered/Resolved]
  - Musculoskeletal stiffness [Recovered/Resolved]

NARRATIVE: CASE EVENT DATE: 20250722
